FAERS Safety Report 4852084-4 (Version None)
Quarter: 2005Q4

REPORT INFORMATION
  Report Type: 
  Country: None (occurrence: None)
  Receive Date: 20051212
  Receipt Date: 20051212
  Transmission Date: 20060501
  Serious: Yes (Hospitalization)
  Sender: FDA-Public Use
  Company Number: None

PATIENT
  Age: 65 Year
  Sex: Male
  Weight: 100 kg

DRUGS (1)
  1. FLUTAMIDE [Suspect]
     Dosage: 125 MG Q 8 ORAL
     Route: 048
     Dates: start: 20050726, end: 20051102

REACTIONS (1)
  - DIARRHOEA [None]
